FAERS Safety Report 12611699 (Version 2)
Quarter: 2017Q1

REPORT INFORMATION
  Report Type: Report from Study
  Country: BR (occurrence: BR)
  Receive Date: 20160801
  Receipt Date: 20170120
  Transmission Date: 20170428
  Serious: Yes (Other)
  Sender: FDA-Public Use
  Company Number: BR-JNJFOC-20160725091

PATIENT
  Age: 55 Year
  Sex: Female
  Weight: 79 kg

DRUGS (3)
  1. SIMPONI [Suspect]
     Active Substance: GOLIMUMAB
     Indication: RHEUMATOID ARTHRITIS
     Route: 058
     Dates: start: 20160308
  2. METHOTREXATE. [Concomitant]
     Active Substance: METHOTREXATE
     Route: 065
  3. SIMPONI [Suspect]
     Active Substance: GOLIMUMAB
     Indication: RHEUMATOID ARTHRITIS
     Route: 058
     Dates: start: 20160519

REACTIONS (4)
  - Urinary tract infection [Not Recovered/Not Resolved]
  - Influenza [Recovering/Resolving]
  - Decreased immune responsiveness [Recovering/Resolving]
  - Skin discolouration [Unknown]

NARRATIVE: CASE EVENT DATE: 201605
